FAERS Safety Report 8792903 (Version 2)
Quarter: 2012Q4

REPORT INFORMATION
  Report Type: 
  Country: US (occurrence: US)
  Receive Date: 20120918
  Receipt Date: 20121009
  Transmission Date: 20130627
  Serious: Yes (Other)
  Sender: FDA-Public Use
  Company Number: US-PFIZER INC-2012228393

PATIENT
  Age: 11 Year
  Sex: Male
  Weight: 14 kg

DRUGS (6)
  1. GENOTROPIN [Suspect]
     Indication: GROWTH HORMONE DEFICIENCY
     Dosage: 0.5 mg, daily
     Route: 058
     Dates: start: 20120602, end: 20120606
  2. GENOTROPIN [Suspect]
     Dosage: 0.5 mg, daily
     Dates: start: 20120909, end: 20120913
  3. LEVOXYL [Concomitant]
     Indication: HYPOTHYROIDISM
     Dosage: 0.44 mg (cutting into half 0.88mg tablet), 1x/day
     Route: 048
     Dates: start: 20010522
  4. LEVOXYL [Concomitant]
     Dosage: 44 ug, 1x/day
  5. FLOVENT [Concomitant]
     Indication: CHRONIC RESPIRATORY FAILURE
     Dosage: 44 ug, 1x/day
  6. FLOVENT [Concomitant]
     Dosage: 44 ug puff at hours

REACTIONS (1)
  - Tachycardia [Recovering/Resolving]
